FAERS Safety Report 25048823 (Version 1)
Quarter: 2025Q1

REPORT INFORMATION
  Report Type: Report from Study
  Country: FR (occurrence: FR)
  Receive Date: 20250307
  Receipt Date: 20250307
  Transmission Date: 20250409
  Serious: Yes (Hospitalization)
  Sender: EMD SERONO INC
  Company Number: FR-Merck Healthcare KGaA-2025010756

PATIENT
  Age: 5 Year
  Sex: Male
  Weight: 13 kg

DRUGS (1)
  1. SAIZEN [Suspect]
     Active Substance: SOMATROPIN
     Indication: Small for dates baby
     Dates: start: 20250206

REACTIONS (4)
  - Abdominal pain upper [Recovering/Resolving]
  - Gastrointestinal inflammation [Unknown]
  - Increased appetite [Not Recovered/Not Resolved]
  - Back pain [Recovered/Resolved]

NARRATIVE: CASE EVENT DATE: 20250206
